FAERS Safety Report 5736797-8 (Version None)
Quarter: 2008Q2

REPORT INFORMATION
  Report Type: 
  Country: None (occurrence: None)
  Receive Date: 20080509
  Receipt Date: 20080430
  Transmission Date: 20081010
  Serious: Yes (Other)
  Sender: FDA-Public Use
  Company Number: 2008S1004297

PATIENT
  Sex: Male

DRUGS (1)
  1. PHOSPHOSODA FALVOR NOT SPECIFIED [Suspect]
     Indication: COLONOSCOPY
     Dosage: PO
     Route: 048

REACTIONS (7)
  - ANAEMIA [None]
  - ASTHENIA [None]
  - CHILLS [None]
  - FATIGUE [None]
  - FEELING COLD [None]
  - MALAISE [None]
  - RENAL FAILURE CHRONIC [None]
